FAERS Safety Report 14995636 (Version 6)
Quarter: 2018Q3

REPORT INFORMATION
  Report Type: Spontaneous
  Country: US (occurrence: US)
  Receive Date: 20180611
  Receipt Date: 20180814
  Transmission Date: 20181010
  Serious: Yes (Other)
  Sender: FDA-Public Use
  Company Number: US-GLENMARK PHARMACEUTICALS-2018GMK035912

PATIENT

DRUGS (1)
  1. RILUZOLE TABLETS USP, 50 MG [Suspect]
     Active Substance: RILUZOLE
     Indication: AMYOTROPHIC LATERAL SCLEROSIS
     Dosage: 4 OR 5 TABLETS FOR 2 DAYS, BID (EVRY 12 HOURS)
     Route: 048

REACTIONS (15)
  - Apparent death [Unknown]
  - Condition aggravated [Unknown]
  - Dyspnoea [Not Recovered/Not Resolved]
  - Crying [Unknown]
  - Malaise [Not Recovered/Not Resolved]
  - Blood glucose increased [Unknown]
  - Product quality issue [Unknown]
  - Dysarthria [Unknown]
  - Fatigue [Unknown]
  - Emotional disorder [Unknown]
  - Aphasia [Unknown]
  - Salivary hypersecretion [Unknown]
  - Dysgeusia [Unknown]
  - Choking [Unknown]
  - Dysphonia [Not Recovered/Not Resolved]
